FAERS Safety Report 25364173 (Version 1)
Quarter: 2025Q2

REPORT INFORMATION
  Report Type: Spontaneous
  Country: CN (occurrence: CN)
  Receive Date: 20250527
  Receipt Date: 20250527
  Transmission Date: 20250717
  Serious: Yes (Hospitalization)
  Sender: ALCON
  Company Number: CN-ALCON LABORATORIES-ALC2025CN002676

PATIENT
  Age: 6 Year
  Sex: Female
  Weight: 25 kg

DRUGS (1)
  1. CYCLOGYL [Suspect]
     Active Substance: CYCLOPENTOLATE HYDROCHLORIDE
     Indication: Mydriasis
     Route: 047
     Dates: start: 20250517, end: 20250517

REACTIONS (1)
  - Neurological symptom [Recovering/Resolving]

NARRATIVE: CASE EVENT DATE: 20250517
